FAERS Safety Report 7591875-6 (Version None)
Quarter: 2011Q3

REPORT INFORMATION
  Report Type: 
  Country: None (occurrence: None)
  Receive Date: 20110706
  Receipt Date: 20110616
  Transmission Date: 20111222
  Serious: Yes (Hospitalization, Other)
  Sender: FDA-Public Use
  Company Number: US-BAYER-2011-024451

PATIENT
  Age: 39 Year
  Sex: Female
  Weight: 113.38 kg

DRUGS (2)
  1. YASMIN [Suspect]
     Indication: PREMENSTRUAL SYNDROME
     Dosage: 1 DF, QD
     Route: 048
     Dates: start: 20050101, end: 20090101
  2. YAZ [Suspect]
     Indication: PREMENSTRUAL SYNDROME
     Dosage: 1 DF, QD
     Route: 048
     Dates: start: 20050101, end: 20090101

REACTIONS (2)
  - GALLBLADDER DISORDER [None]
  - CHOLECYSTITIS [None]
